FAERS Safety Report 9146529 (Version 1)
Quarter: 2013Q1

REPORT INFORMATION
  Report Type: Spontaneous
  Country: US (occurrence: US)
  Receive Date: 20130307
  Receipt Date: 20130307
  Transmission Date: 20140127
  Serious: No
  Sender: FDA-Public Use
  Company Number: US-GLAXOSMITHKLINE-A0997161A

PATIENT
  Age: 79 Year
  Sex: Female

DRUGS (8)
  1. REQUIP [Suspect]
     Indication: RESTLESS LEGS SYNDROME
     Dosage: 2MG AS REQUIRED
     Route: 048
     Dates: start: 2008
  2. IBUPROFEN [Concomitant]
  3. TRAMADOL [Concomitant]
  4. VALIUM [Concomitant]
  5. PREDNISONE [Concomitant]
  6. UNKNOWN MEDICATION [Concomitant]
  7. NORTRIPTYLINE [Concomitant]
  8. ADVAIR [Concomitant]

REACTIONS (1)
  - Therapeutic response decreased [Not Recovered/Not Resolved]
